FAERS Safety Report 17839474 (Version 5)
Quarter: 2021Q2

REPORT INFORMATION
  Report Type: Report from Study
  Country: US (occurrence: US)
  Receive Date: 20200529
  Receipt Date: 20210629
  Transmission Date: 20210717
  Serious: Yes (Hospitalization, Other)
  Sender: FDA-Public Use
  Company Number: US-SHIRE-US202017693

PATIENT
  Sex: Male
  Weight: 84.8 kg

DRUGS (32)
  1. MYMIX [Concomitant]
     Indication: PRODUCT USED FOR UNKNOWN INDICATION
  2. DIMETAPP (PPA) [Concomitant]
     Indication: PRODUCT USED FOR UNKNOWN INDICATION
  3. PROAIR HFA [Concomitant]
     Active Substance: ALBUTEROL SULFATE
     Indication: PRODUCT USED FOR UNKNOWN INDICATION
  4. FLUNISOLIDE. [Concomitant]
     Active Substance: FLUNISOLIDE
     Indication: PRODUCT USED FOR UNKNOWN INDICATION
  5. METFORMIN [Concomitant]
     Active Substance: METFORMIN HYDROCHLORIDE
     Indication: PRODUCT USED FOR UNKNOWN INDICATION
  6. NITROGLYCERIN. [Concomitant]
     Active Substance: NITROGLYCERIN
     Indication: PRODUCT USED FOR UNKNOWN INDICATION
  7. PROPIONATE [Concomitant]
  8. CUVITRU [Suspect]
     Active Substance: HUMAN IMMUNOGLOBULIN G
     Indication: HYPOGAMMAGLOBULINAEMIA
     Dosage: 10 GRAM, 1/WEEK
     Route: 058
     Dates: start: 20181112
  9. IBUPROFEN. [Concomitant]
     Active Substance: IBUPROFEN
     Indication: PRODUCT USED FOR UNKNOWN INDICATION
  10. AZELASTINE. [Concomitant]
     Active Substance: AZELASTINE HYDROCHLORIDE
     Indication: PRODUCT USED FOR UNKNOWN INDICATION
  11. MULTIVITAMINS [VITAMINS NOS] [Concomitant]
     Active Substance: VITAMINS
     Indication: PRODUCT USED FOR UNKNOWN INDICATION
  12. PATADAY [Concomitant]
     Active Substance: OLOPATADINE HYDROCHLORIDE
     Indication: PRODUCT USED FOR UNKNOWN INDICATION
  13. ACETAMINOPHEN. [Concomitant]
     Active Substance: ACETAMINOPHEN
     Indication: PRODUCT USED FOR UNKNOWN INDICATION
  14. IMPOYZ [Concomitant]
     Active Substance: CLOBETASOL PROPIONATE
     Indication: PRODUCT USED FOR UNKNOWN INDICATION
  15. SOTALOL. [Concomitant]
     Active Substance: SOTALOL
     Indication: PRODUCT USED FOR UNKNOWN INDICATION
  16. CLOBETASOL [Concomitant]
     Active Substance: CLOBETASOL
     Indication: PRODUCT USED FOR UNKNOWN INDICATION
  17. DESONATE [Concomitant]
     Active Substance: DESONIDE
  18. SINGULAIR [Concomitant]
     Active Substance: MONTELUKAST SODIUM
     Indication: PRODUCT USED FOR UNKNOWN INDICATION
  19. PANTOPRAZOLE [Concomitant]
     Active Substance: PANTOPRAZOLE
     Indication: PRODUCT USED FOR UNKNOWN INDICATION
  20. GABAPENTIN. [Concomitant]
     Active Substance: GABAPENTIN
     Indication: PRODUCT USED FOR UNKNOWN INDICATION
  21. LISINOPRIL. [Concomitant]
     Active Substance: LISINOPRIL
     Indication: PRODUCT USED FOR UNKNOWN INDICATION
  22. QVAR [Concomitant]
     Active Substance: BECLOMETHASONE DIPROPIONATE
     Indication: PRODUCT USED FOR UNKNOWN INDICATION
  23. MUCINEX [Concomitant]
     Active Substance: GUAIFENESIN
     Indication: PRODUCT USED FOR UNKNOWN INDICATION
  24. GLIMEPIRIDE. [Concomitant]
     Active Substance: GLIMEPIRIDE
     Indication: PRODUCT USED FOR UNKNOWN INDICATION
  25. DIPHENHYDRAMINE. [Concomitant]
     Active Substance: DIPHENHYDRAMINE
     Indication: PRODUCT USED FOR UNKNOWN INDICATION
  26. LMX4 [Concomitant]
     Active Substance: LIDOCAINE
     Indication: PRODUCT USED FOR UNKNOWN INDICATION
  27. ASPIRIN [ACETYLSALICYLIC ACID] [Concomitant]
     Active Substance: ASPIRIN
     Indication: PRODUCT USED FOR UNKNOWN INDICATION
  28. CLOPIDOGREL [Concomitant]
     Active Substance: CLOPIDOGREL BISULFATE
     Indication: PRODUCT USED FOR UNKNOWN INDICATION
  29. SODIUM [Concomitant]
     Active Substance: SODIUM
  30. CUVITRU [Suspect]
     Active Substance: HUMAN IMMUNOGLOBULIN G
     Indication: IMMUNODEFICIENCY COMMON VARIABLE
     Dosage: 10 GRAM, 1/WEEK
     Route: 058
     Dates: start: 20181113
  31. EPINEPHRINE. [Concomitant]
     Active Substance: EPINEPHRINE
     Indication: PRODUCT USED FOR UNKNOWN INDICATION
  32. ALLEGRA [Concomitant]
     Active Substance: FEXOFENADINE HYDROCHLORIDE
     Indication: PRODUCT USED FOR UNKNOWN INDICATION

REACTIONS (5)
  - Atrial fibrillation [Unknown]
  - Sinusitis [Unknown]
  - Tachycardia [Unknown]
  - Medical device implantation [Unknown]
  - Device difficult to use [Unknown]
